FAERS Safety Report 15971630 (Version 1)
Quarter: 2019Q1

REPORT INFORMATION
  Report Type: Spontaneous
  Country: US (occurrence: US)
  Receive Date: 20190215
  Receipt Date: 20190215
  Transmission Date: 20190418
  Serious: No
  Sender: FDA-Public Use
  Company Number: US-AMAG PHARMACEUTICALS, INC.-AMAG201804627

PATIENT
  Age: 40 Year
  Sex: Female

DRUGS (2)
  1. PRENATE [Concomitant]
     Indication: SUPPLEMENTATION THERAPY
     Dosage: 1 UNITS, QD
     Route: 065
     Dates: start: 20180713
  2. MAKENA [Suspect]
     Active Substance: HYDROXYPROGESTERONE CAPROATE
     Indication: PRODUCT USED FOR UNKNOWN INDICATION
     Dosage: 250 MG/ML, WEEKLY
     Route: 058
     Dates: start: 20180821

REACTIONS (2)
  - Injection site pain [Recovered/Resolved]
  - Back pain [Recovered/Resolved]

NARRATIVE: CASE EVENT DATE: 20180821
